FAERS Safety Report 23601572 (Version 1)
Quarter: 2024Q1

REPORT INFORMATION
  Report Type: Spontaneous
  Country: CN (occurrence: CN)
  Receive Date: 20240306
  Receipt Date: 20240306
  Transmission Date: 20240410
  Serious: Yes (Disabling)
  Sender: FDA-Public Use
  Company Number: CN-Merck Healthcare KGaA-2024011507

PATIENT
  Age: 73 Year
  Sex: Female
  Weight: 65 kg

DRUGS (12)
  1. ERBITUX [Suspect]
     Active Substance: CETUXIMAB
     Indication: Colon cancer metastatic
     Dosage: 800 MG, UNKNOWN
     Route: 041
     Dates: start: 20231222
  2. ERBITUX [Suspect]
     Active Substance: CETUXIMAB
     Dosage: 800 MG, UNKNOWN
     Route: 041
     Dates: start: 20240122
  3. FLUOROURACIL [Suspect]
     Active Substance: FLUOROURACIL
     Indication: Colon cancer metastatic
     Dosage: .69 G, DAILY
     Route: 041
     Dates: start: 20231222, end: 20231222
  4. FLUOROURACIL [Suspect]
     Active Substance: FLUOROURACIL
     Dosage: 4.15 G, DAILY
     Dates: start: 20231222, end: 20231222
  5. FLUOROURACIL [Suspect]
     Active Substance: FLUOROURACIL
     Dosage: .69 G, DAILY
     Route: 041
     Dates: start: 20240122, end: 20240122
  6. FLUOROURACIL [Suspect]
     Active Substance: FLUOROURACIL
     Dosage: 4.15 G, DAILY
     Dates: start: 20240122, end: 20240122
  7. IRINOTECAN HYDROCHLORIDE [Suspect]
     Active Substance: IRINOTECAN HYDROCHLORIDE
     Indication: Colon cancer metastatic
     Dosage: 300 MG, DAILY
     Route: 041
     Dates: start: 20231222, end: 20231222
  8. IRINOTECAN HYDROCHLORIDE [Suspect]
     Active Substance: IRINOTECAN HYDROCHLORIDE
     Dosage: 300 MG, DAILY
     Route: 041
     Dates: start: 20240122, end: 20240122
  9. LEUCOGEN [Concomitant]
     Active Substance: LEUCOGEN
     Indication: White blood cell count decreased
     Dosage: 40 MG, UNK
     Route: 048
     Dates: start: 20231225, end: 20240104
  10. LEUCOGEN [Concomitant]
     Active Substance: LEUCOGEN
     Dosage: 40 MG, UNK
     Route: 048
     Dates: start: 20240121, end: 20240124
  11. LEUCOVORIN CALCIUM [Concomitant]
     Active Substance: LEUCOVORIN CALCIUM
     Indication: Colon cancer metastatic
     Dosage: 690 MG, DAILY
     Route: 041
     Dates: start: 20231222, end: 20231222
  12. LEUCOVORIN CALCIUM [Concomitant]
     Active Substance: LEUCOVORIN CALCIUM
     Dosage: 690 MG, DAILY
     Route: 041
     Dates: start: 20240122, end: 20240122

REACTIONS (1)
  - Myelosuppression [Recovering/Resolving]

NARRATIVE: CASE EVENT DATE: 20240206
